FAERS Safety Report 5897191-2 (Version None)
Quarter: 2008Q3

REPORT INFORMATION
  Report Type: 
  Country: None (occurrence: None)
  Receive Date: 20080923
  Receipt Date: 20080911
  Transmission Date: 20090109
  Serious: Yes (Disabling)
  Sender: FDA-Public Use
  Company Number: 08H-163-0314890-00

PATIENT
  Age: 2 Hour
  Sex: Male
  Weight: 2.3 kg

DRUGS (3)
  1. DEXTROSE 10% [Suspect]
     Indication: DRUG USE FOR UNKNOWN INDICATION
     Dosage: INTRAVENOUS;   BOLUS, ONCE, INTRAVENOUS
     Route: 042
     Dates: start: 20080101, end: 20080101
  2. AMPICILLIN [Concomitant]
  3. SODIUM CHLORIDE [Concomitant]

REACTIONS (6)
  - AIR EMBOLISM [None]
  - CEREBRAL INFARCTION [None]
  - CYANOSIS [None]
  - LIVEDO RETICULARIS [None]
  - PALLOR [None]
  - TONIC CONVULSION [None]
